FAERS Safety Report 12075518 (Version 1)
Quarter: 2016Q1

REPORT INFORMATION
  Report Type: Other
  Country: IN (occurrence: IN)
  Receive Date: 20160213
  Receipt Date: 20160213
  Transmission Date: 20160526
  Serious: Yes (Hospitalization, Congenital Anomaly, Other)
  Sender: FDA-Public Use
  Company Number: IN-AJANTA PHARMA USA INC.-1047775

PATIENT
  Age: 1 Day

DRUGS (1)
  1. LEVETIRACETAM. [Suspect]
     Active Substance: LEVETIRACETAM
     Route: 064

REACTIONS (2)
  - Foetal exposure during pregnancy [None]
  - Duodenal atresia [Recovered/Resolved]

NARRATIVE: CASE EVENT DATE: 20150906
